FAERS Safety Report 5984542-3 (Version None)
Quarter: 2008Q4

REPORT INFORMATION
  Report Type: 
  Country: None (occurrence: None)
  Receive Date: 20081202
  Receipt Date: 20081114
  Transmission Date: 20090506
  Serious: Yes (Hospitalization)
  Sender: FDA-Public Use
  Company Number: 2008S1020561

PATIENT
  Age: 80 Year
  Sex: Female

DRUGS (1)
  1. CIPROELOXACIN (CIPROFLOXACIN) [Suspect]
     Indication: RESPIRATORY TRACT INFECTION
     Dosage: 500 MG;TWICE A DAY, ORAL
     Route: 048

REACTIONS (5)
  - ABASIA [None]
  - ALTERED STATE OF CONSCIOUSNESS [None]
  - CONFUSIONAL STATE [None]
  - RENAL FAILURE CHRONIC [None]
  - STATUS EPILEPTICUS [None]
